FAERS Safety Report 8900006 (Version 1)
Quarter: 2012Q4

REPORT INFORMATION
  Report Type: Report from Study
  Country: AU (occurrence: AU)
  Receive Date: 20121109
  Receipt Date: 20121109
  Transmission Date: 20130627
  Serious: Yes (Other)
  Sender: FDA-Public Use
  Company Number: PHHY2012AU095345

PATIENT
  Sex: Male

DRUGS (5)
  1. CLOZARIL [Suspect]
     Indication: SCHIZOPHRENIA
     Dosage: 900 mg, UNK
     Route: 048
     Dates: start: 19930707
  2. LIPITOR [Concomitant]
     Dosage: 40 mg, UNK
     Route: 048
  3. CATAPRES [Concomitant]
     Dosage: 100 ug, UNK (in nocte)
     Route: 048
  4. PAXAM [Concomitant]
     Dosage: 50 ug, TID
  5. PHENOTHIAZINE [Concomitant]

REACTIONS (3)
  - Retinal pigmentation [Unknown]
  - Corneal pigmentation [Unknown]
  - Macular pigmentation [Unknown]
